FAERS Safety Report 5830423-5 (Version None)
Quarter: 2008Q3

REPORT INFORMATION
  Report Type: 
  Country: None (occurrence: None)
  Receive Date: 20080801
  Receipt Date: 20080723
  Transmission Date: 20090109
  Serious: Yes (Other)
  Sender: FDA-Public Use
  Company Number: US-JNJFOC-20080706067

PATIENT
  Sex: Male
  Weight: 78.02 kg

DRUGS (7)
  1. REMICADE [Suspect]
     Dosage: 24 INFUSIONS OF INFLIXIMAB ADMINISTERED AFTER BASELINE
     Route: 042
  2. REMICADE [Suspect]
     Route: 042
  3. REMICADE [Suspect]
     Route: 042
  4. REMICADE [Suspect]
     Indication: CROHN'S DISEASE
     Dosage: 7 INFUSIONS OF INFLIXIMAB ADMINISTERED PRIOR TO BASELINE
     Route: 042
  5. MESALAMINE [Concomitant]
     Indication: CROHN'S DISEASE
  6. ARANESP [Concomitant]
     Indication: CROHN'S DISEASE
  7. FERROUS SULFATE TAB [Concomitant]
     Indication: CROHN'S DISEASE

REACTIONS (1)
  - MYELODYSPLASTIC SYNDROME [None]
